FAERS Safety Report 5913642-9 (Version None)
Quarter: 2008Q4

REPORT INFORMATION
  Report Type: 
  Country: None (occurrence: None)
  Receive Date: 20081009
  Receipt Date: 20080930
  Transmission Date: 20090506
  Serious: Yes (Other)
  Sender: FDA-Public Use
  Company Number: US-ROCHE-586665

PATIENT
  Sex: Female
  Weight: 60.3 kg

DRUGS (4)
  1. CAPECITABINE [Suspect]
     Route: 065
     Dates: start: 20080326, end: 20080813
  2. CAPECITABINE [Suspect]
     Dosage: DOSE LOWERED
     Route: 065
  3. M.V.I. [Concomitant]
  4. SYNTHROID [Concomitant]

REACTIONS (1)
  - BREAST CANCER [None]
